FAERS Safety Report 25431156 (Version 1)
Quarter: 2025Q2

REPORT INFORMATION
  Report Type: Spontaneous
  Country: US (occurrence: None)
  Receive Date: 20250613
  Receipt Date: 20250613
  Transmission Date: 20250716
  Serious: No
  Sender: OREXO
  Company Number: US-Orexo US, Inc.-ORE202504-000017

PATIENT
  Age: 33 Year
  Sex: Female
  Weight: 54.431 kg

DRUGS (1)
  1. ZUBSOLV [Suspect]
     Active Substance: BUPRENORPHINE HYDROCHLORIDE\NALOXONE HYDROCHLORIDE
     Indication: Pain management
     Route: 060
     Dates: start: 2022

REACTIONS (2)
  - Product colour issue [Unknown]
  - Product use in unapproved indication [Unknown]

NARRATIVE: CASE EVENT DATE: 20220101
